FAERS Safety Report 17873682 (Version 1)
Quarter: 2020Q2

REPORT INFORMATION
  Report Type: Report from Study
  Country: None (occurrence: US)
  Receive Date: 20200609
  Receipt Date: 20200609
  Transmission Date: 20200714
  Serious: Yes (Hospitalization, Other)
  Sender: FDA-Public Use
  Company Number: US-ABBVIE-20K-163-3432421-00

PATIENT
  Age: 9 Year
  Sex: Female

DRUGS (1)
  1. VENCLEXTA [Suspect]
     Active Substance: VENETOCLAX
     Indication: ACUTE LYMPHOCYTIC LEUKAEMIA
     Route: 048
     Dates: start: 20200507

REACTIONS (4)
  - Decreased activity [Unknown]
  - Emotional disorder [Unknown]
  - Hospitalisation [Unknown]
  - Leukaemia [Unknown]

NARRATIVE: CASE EVENT DATE: 202005
